FAERS Safety Report 22166621 (Version 1)
Quarter: 2023Q2

REPORT INFORMATION
  Report Type: Spontaneous
  Country: US (occurrence: None)
  Receive Date: 20230401
  Receipt Date: 20230401
  Transmission Date: 20230721
  Serious: Yes (Other)
  Sender: FDA-Public Use
  Company Number: None

PATIENT
  Age: 70 Year
  Sex: Female
  Weight: 65.25 kg

DRUGS (11)
  1. CLONAZEPAM [Suspect]
     Active Substance: CLONAZEPAM
     Indication: Post-traumatic stress disorder
     Dosage: FREQUENCY : TWICE A DAY;?
     Route: 048
  2. CLONAZEPAM [Suspect]
     Active Substance: CLONAZEPAM
     Indication: Panic disorder
  3. CLONAZEPAM [Suspect]
     Active Substance: CLONAZEPAM
     Indication: Anxiety disorder
  4. CLONAZEPAM [Suspect]
     Active Substance: CLONAZEPAM
     Indication: Fibromyalgia
  5. CLONAZEPAM [Suspect]
     Active Substance: CLONAZEPAM
     Indication: Mucopolysaccharidosis
  6. AMLODIPINE [Concomitant]
     Active Substance: AMLODIPINE BESYLATE
  7. Besylate [Concomitant]
  8. CLOPIDOGREL [Concomitant]
     Active Substance: CLOPIDOGREL BISULFATE
  9. Pink Clonazepam [Concomitant]
  10. Oral sublingual drops of SBR [Concomitant]
  11. VITAMIN B12 [Concomitant]
     Active Substance: CYANOCOBALAMIN

REACTIONS (8)
  - Tremor [None]
  - Nausea [None]
  - Headache [None]
  - Palpitations [None]
  - Reaction to azo-dyes [None]
  - Product colour issue [None]
  - Condition aggravated [None]
  - Post-traumatic stress disorder [None]

NARRATIVE: CASE EVENT DATE: 20230127
